FAERS Safety Report 24454523 (Version 2)
Quarter: 2024Q4

REPORT INFORMATION
  Report Type: Spontaneous
  Country: IT (occurrence: IT)
  Receive Date: 20241017
  Receipt Date: 20241018
  Transmission Date: 20250115
  Serious: No
  Sender: ROCHE
  Company Number: IT-ROCHE-3465109

PATIENT

DRUGS (1)
  1. MABTHERA [Suspect]
     Active Substance: RITUXIMAB
     Indication: Product used for unknown indication
     Dosage: 1400 MG/11,7 ML
     Route: 058

REACTIONS (2)
  - Product storage error [Unknown]
  - No adverse event [Unknown]
